FAERS Safety Report 19972845 (Version 1)
Quarter: 2021Q4

REPORT INFORMATION
  Report Type: Spontaneous
  Country: US (occurrence: US)
  Receive Date: 20211018
  Receipt Date: 20211018
  Transmission Date: 20220304
  Serious: No
  Sender: FDA-Public Use
  Company Number: None

PATIENT
  Sex: Female

DRUGS (1)
  1. TREMFYA [Suspect]
     Active Substance: GUSELKUMAB
     Indication: Psoriasis
     Dosage: ?          OTHER DOSE:SEE EVENT;OTHER FREQUENCY:SEE EVENT;
     Route: 058
     Dates: start: 202109

REACTIONS (1)
  - Drug ineffective [None]
